FAERS Safety Report 8275810-3 (Version None)
Quarter: 2012Q2

REPORT INFORMATION
  Report Type: 
  Country: None (occurrence: None)
  Receive Date: 20120410
  Receipt Date: 20120410
  Transmission Date: 20120825
  Serious: Yes (Hospitalization)
  Sender: FDA-Public Use
  Company Number: None

PATIENT
  Age: 62 Year
  Sex: Male
  Weight: 81.6 kg

DRUGS (1)
  1. NAFCILLIN [Suspect]
     Indication: INFECTION
     Dates: start: 20111229, end: 20120103

REACTIONS (1)
  - ERYTHEMA MULTIFORME [None]
